FAERS Safety Report 7065268-4 (Version None)
Quarter: 2010Q4

REPORT INFORMATION
  Report Type: 
  Country: None (occurrence: None)
  Receive Date: 20101027
  Receipt Date: 20101019
  Transmission Date: 20110411
  Serious: Yes (Hospitalization)
  Sender: FDA-Public Use
  Company Number: US-JNJFOC-20100900240

PATIENT
  Sex: Female
  Weight: 63.5 kg

DRUGS (4)
  1. LEVAQUIN [Suspect]
     Indication: SINUSITIS
     Route: 048
  2. CYMBALTA [Concomitant]
     Indication: DEPRESSION
     Route: 048
  3. DESYREL [Concomitant]
     Indication: SLEEP DISORDER THERAPY
     Route: 048
  4. LEVOTHYROXINE [Concomitant]
     Indication: HYPOTHYROIDISM
     Route: 048

REACTIONS (3)
  - EXTRASYSTOLES [None]
  - HYPERHIDROSIS [None]
  - VOMITING [None]
